FAERS Safety Report 13192544 (Version 2)
Quarter: 2017Q1

REPORT INFORMATION
  Report Type: Report from Study
  Country: KR (occurrence: KR)
  Receive Date: 20170207
  Receipt Date: 20170217
  Transmission Date: 20170428
  Serious: Yes (Hospitalization, Disabling)
  Sender: FDA-Public Use
  Company Number: KR-PFIZER INC-2017037713

PATIENT
  Age: 57 Year
  Sex: Female
  Weight: 50 kg

DRUGS (1)
  1. PACLITAXEL. [Suspect]
     Active Substance: PACLITAXEL
     Indication: ADENOCARCINOMA GASTRIC
     Dosage: 114 MG, UNK
     Route: 042
     Dates: start: 20160620, end: 20161017

REACTIONS (3)
  - Asthenia [Not Recovered/Not Resolved]
  - Cholangitis [Not Recovered/Not Resolved]
  - Decreased appetite [Not Recovered/Not Resolved]

NARRATIVE: CASE EVENT DATE: 20161210
